FAERS Safety Report 25528247 (Version 1)
Quarter: 2025Q3

REPORT INFORMATION
  Report Type: Spontaneous
  Country: EU (occurrence: EU)
  Receive Date: 20250708
  Receipt Date: 20250708
  Transmission Date: 20251020
  Serious: Yes (Hospitalization)
  Sender: RANBAXY
  Company Number: EU-AFSSAPS-NY2025000330

PATIENT
  Age: 64 Year
  Sex: Male
  Weight: 84 kg

DRUGS (30)
  1. TEMOZOLOMIDE [Suspect]
     Active Substance: TEMOZOLOMIDE
     Indication: Glioblastoma
     Dosage: 300 MILLIGRAM, DAILY
     Route: 048
     Dates: start: 20240318, end: 20240322
  2. TEMOZOLOMIDE [Suspect]
     Active Substance: TEMOZOLOMIDE
     Dosage: 400 MILLIGRAM, DAILY
     Route: 048
     Dates: start: 20240415, end: 20240419
  3. PREDNISOLONE [Suspect]
     Active Substance: PREDNISOLONE
     Indication: Glioblastoma
     Dosage: 60 MILLIGRAM, DAILY
     Route: 048
     Dates: start: 20240207, end: 20240227
  4. PREDNISOLONE [Suspect]
     Active Substance: PREDNISOLONE
     Dosage: 50 MILLIGRAM, DAILY
     Route: 048
     Dates: start: 20240228, end: 20240305
  5. PREDNISOLONE [Suspect]
     Active Substance: PREDNISOLONE
     Dosage: 40 MILLIGRAM, DAILY
     Route: 048
     Dates: start: 20240306, end: 20240410
  6. PREDNISOLONE [Suspect]
     Active Substance: PREDNISOLONE
     Dosage: 60 MILLIGRAM, DAILY
     Route: 048
     Dates: start: 20240411, end: 20240510
  7. PREDNISOLONE [Suspect]
     Active Substance: PREDNISOLONE
     Dosage: 160 MILLIGRAM, DAILY
     Route: 048
     Dates: start: 20240511, end: 20240605
  8. PREDNISOLONE [Suspect]
     Active Substance: PREDNISOLONE
     Dosage: 40 MILLIGRAM, DAILY
     Route: 048
     Dates: start: 20240606, end: 20240613
  9. METHYLPREDNISOLONE [Suspect]
     Active Substance: METHYLPREDNISOLONE
     Indication: Intracranial pressure increased
     Dosage: 120 MILLIGRAM, BID
     Route: 040
     Dates: start: 20240613, end: 20240615
  10. VEGZELMA [Concomitant]
     Active Substance: BEVACIZUMAB-ADCD
     Indication: Glioblastoma
     Route: 040
     Dates: start: 20240313, end: 20240605
  11. VEGZELMA [Concomitant]
     Active Substance: BEVACIZUMAB-ADCD
     Route: 065
     Dates: start: 20240704
  12. AMLODIPINE BESYLATE [Concomitant]
     Active Substance: AMLODIPINE BESYLATE
     Indication: Hypertension
     Dosage: 10 MILLIGRAM, DAILY
     Route: 048
  13. CANDESARTAN CILEXETIL [Concomitant]
     Active Substance: CANDESARTAN CILEXETIL
     Indication: Hypertension
     Dosage: 16 MILLIGRAM, DAILY
     Route: 048
  14. LEVOTHYROXINE [Concomitant]
     Active Substance: LEVOTHYROXINE
     Indication: Hypothyroidism
     Dosage: 150 MICROGRAM, DAILY
     Route: 048
  15. METFORMIN [Concomitant]
     Active Substance: METFORMIN HYDROCHLORIDE
     Indication: Diabetes mellitus
     Dosage: 1000 MILLIGRAM, BID
     Route: 048
  16. LOVENOX [Concomitant]
     Active Substance: ENOXAPARIN SODIUM
     Indication: Thrombosis prophylaxis
     Route: 058
  17. MOVICOL [Concomitant]
     Active Substance: POLYETHYLENE GLYCOL 3350\POTASSIUM CHLORIDE\SODIUM BICARBONATE\SODIUM CHLORIDE
     Indication: Constipation
     Route: 048
  18. ACETAMINOPHEN [Concomitant]
     Active Substance: ACETAMINOPHEN
     Indication: Pain
     Route: 048
  19. CODEINE [Concomitant]
     Active Substance: CODEINE
     Indication: Pain
     Route: 048
  20. ALFUZOSIN HYDROCHLORIDE [Concomitant]
     Active Substance: ALFUZOSIN HYDROCHLORIDE
     Indication: Benign prostatic hyperplasia
     Dosage: 10 MILLIGRAM, DAILY
     Route: 048
  21. CALCIUM [Concomitant]
     Active Substance: CALCIUM
     Indication: Mineral supplementation
     Route: 048
  22. VITAMIN D3 [Concomitant]
     Active Substance: CHOLECALCIFEROL
     Indication: Vitamin supplementation
     Route: 048
  23. MELATONIN [Concomitant]
     Active Substance: MELATONIN
     Indication: Sleep disorder
     Dosage: 2 MILLIGRAM, DAILY
     Route: 048
  24. POTASSIUM CHLORIDE [Concomitant]
     Active Substance: POTASSIUM CHLORIDE
     Indication: Hypokalaemia
     Route: 048
  25. SMECTA [Concomitant]
     Active Substance: MONTMORILLONITE
     Indication: Constipation
     Route: 048
  26. SODIUM ALGINATE [Concomitant]
     Active Substance: SODIUM ALGINATE
     Indication: Abdominal pain upper
     Route: 048
  27. ALPRAZOLAM [Concomitant]
     Active Substance: ALPRAZOLAM
     Indication: Product used for unknown indication
     Dosage: 0.13 MILLIGRAM, TID
     Route: 048
  28. ACUPAN [Concomitant]
     Active Substance: NEFOPAM HYDROCHLORIDE
     Indication: Pain
     Route: 048
  29. BACTRIM [Concomitant]
     Active Substance: SULFAMETHOXAZOLE\TRIMETHOPRIM
     Indication: Opportunistic infection prophylaxis
     Route: 048
  30. LANTUS SOLOSTAR [Concomitant]
     Active Substance: INSULIN GLARGINE
     Indication: Diabetes mellitus
     Route: 058

REACTIONS (1)
  - Oedematous pancreatitis [Recovered/Resolved]

NARRATIVE: CASE EVENT DATE: 20240616
